FAERS Safety Report 4354141-8 (Version None)
Quarter: 2004Q2

REPORT INFORMATION
  Report Type: 
  Country: None (occurrence: None)
  Receive Date: 20040503
  Receipt Date: 20040422
  Transmission Date: 20050107
  Serious: Yes (Hospitalization)
  Sender: FDA-Public Use
  Company Number: F01200400785

PATIENT
  Age: 81 Year
  Sex: Female

DRUGS (10)
  1. (FONDAPARINUX SODIUM) - SOLUTION - UNIT DOSE : UNKNOWN [Suspect]
     Indication: SURGERY
     Dosage: 2.5 MG; SUBCUTANEOUS
     Route: 058
     Dates: start: 20031211, end: 20040104
  2. INHIBIN [Concomitant]
  3. STILNOX (ZOLPIDEM) [Concomitant]
  4. NEXIUM [Concomitant]
  5. TRAMADOL HCL [Concomitant]
  6. ACETAMINOPHEN [Concomitant]
  7. CODEINE [Concomitant]
  8. MOVICOLON [Concomitant]
  9. ENALAPRIL MALEATE [Concomitant]
  10. ASCAL (ACETYLSALICYLATE CALCIUM) [Concomitant]

REACTIONS (5)
  - CONFUSIONAL STATE [None]
  - DUODENAL ULCER HAEMORRHAGE [None]
  - HAEMATOCRIT DECREASED [None]
  - HAEMOGLOBIN DECREASED [None]
  - HELICOBACTER INFECTION [None]
